FAERS Safety Report 9471867 (Version 1)
Quarter: 2013Q3

REPORT INFORMATION
  Report Type: Spontaneous
  Country: US (occurrence: US)
  Receive Date: 20130822
  Receipt Date: 20130822
  Transmission Date: 20140515
  Serious: No
  Sender: FDA-Public Use
  Company Number: US-009507513-1308USA006033

PATIENT
  Sex: Female

DRUGS (3)
  1. VICTRELIS [Suspect]
     Indication: HEPATITIS C
     Dosage: 800 MG, Q8H
     Route: 048
     Dates: start: 201304
  2. RIBAPAK [Suspect]
  3. PEGASYS [Suspect]

REACTIONS (12)
  - Night sweats [Unknown]
  - Vision blurred [Unknown]
  - Dizziness [Unknown]
  - Headache [Unknown]
  - Fatigue [Unknown]
  - Asthenia [Unknown]
  - Arthralgia [Unknown]
  - Myalgia [Unknown]
  - Red blood cell count decreased [Unknown]
  - Anaemia [Unknown]
  - Bone marrow disorder [Unknown]
  - Influenza like illness [Unknown]
